FAERS Safety Report 19669687 (Version 3)
Quarter: 2022Q1

REPORT INFORMATION
  Report Type: Spontaneous
  Country: JP (occurrence: None)
  Receive Date: 20210806
  Receipt Date: 20220329
  Transmission Date: 20220423
  Serious: Yes (Death, Life-Threatening, Hospitalization, Other)
  Sender: FDA-Public Use
  Company Number: 2021A668324

PATIENT
  Age: 87 Year
  Sex: Male
  Weight: 49 kg

DRUGS (5)
  1. TAGRISSO [Suspect]
     Active Substance: OSIMERTINIB
     Indication: Non-small cell lung cancer
     Route: 048
     Dates: start: 20210525, end: 20210624
  2. MAGNESIUM OXIDE [Concomitant]
     Active Substance: MAGNESIUM OXIDE
     Dosage: NUMBER OF SEPARATE DOSAGES UNKNOWN
     Route: 048
  3. JANUVIA [Concomitant]
     Active Substance: SITAGLIPTIN PHOSPHATE
     Route: 048
  4. AMLODIPINE BESYLATE\VALSARTAN [Concomitant]
     Active Substance: AMLODIPINE BESYLATE\VALSARTAN
     Route: 048
  5. GLIMEPIRIDE [Concomitant]
     Active Substance: GLIMEPIRIDE
     Route: 048

REACTIONS (16)
  - Multiple organ dysfunction syndrome [Fatal]
  - Gastric ulcer haemorrhage [Recovered/Resolved]
  - Pneumothorax [Recovering/Resolving]
  - Shock haemorrhagic [Unknown]
  - Upper gastrointestinal haemorrhage [Recovered/Resolved]
  - Platelet count decreased [Not Recovered/Not Resolved]
  - Interstitial lung disease [Fatal]
  - Oedema peripheral [Unknown]
  - Orthopnoea [Unknown]
  - Melaena [Recovered/Resolved]
  - Atrial fibrillation [Not Recovered/Not Resolved]
  - Urine output decreased [Unknown]
  - Blood pressure decreased [Unknown]
  - Renal impairment [Unknown]
  - Pleural effusion [Recovered/Resolved]
  - Pneumomediastinum [Not Recovered/Not Resolved]

NARRATIVE: CASE EVENT DATE: 20210620
